FAERS Safety Report 17968495 (Version 1)
Quarter: 2020Q3

REPORT INFORMATION
  Report Type: Spontaneous
  Country: SE (occurrence: SE)
  Receive Date: 20200701
  Receipt Date: 20200701
  Transmission Date: 20201103
  Serious: Yes (Other)
  Sender: FDA-Public Use
  Company Number: SE-MYLANLABS-2020M1059151

PATIENT
  Age: 69 Year
  Sex: Male

DRUGS (2)
  1. THACAPZOL [Suspect]
     Active Substance: METHIMAZOLE
     Indication: ATRIAL FIBRILLATION
     Dosage: UNK
  2. THACAPZOL [Suspect]
     Active Substance: METHIMAZOLE
     Indication: ATRIAL FLUTTER

REACTIONS (1)
  - Neutropenia [Unknown]
